FAERS Safety Report 4421486-2 (Version None)
Quarter: 2004Q3

REPORT INFORMATION
  Report Type: 
  Country: None (occurrence: None)
  Receive Date: 20040712
  Receipt Date: 20040520
  Transmission Date: 20050211
  Serious: No
  Sender: FDA-Public Use
  Company Number: 2004-05-1470

PATIENT
  Sex: Female

DRUGS (1)
  1. CLARINEX [Suspect]
     Dosage: ORAL
     Route: 048

REACTIONS (2)
  - INTENTIONAL MISUSE [None]
  - UNEXPECTED THERAPEUTIC DRUG EFFECT [None]
